FAERS Safety Report 6524493-9 (Version None)
Quarter: 2010Q1

REPORT INFORMATION
  Report Type: 
  Country: None (occurrence: None)
  Receive Date: 20100104
  Receipt Date: 20091222
  Transmission Date: 20100710
  Serious: No
  Sender: FDA-Public Use
  Company Number: AU-JNJFOC-20091206601

PATIENT
  Sex: Female

DRUGS (4)
  1. DURAGESIC-100 [Suspect]
     Indication: DRUG USE FOR UNKNOWN INDICATION
     Route: 062
  2. DURAGESIC-100 [Suspect]
     Route: 062
  3. DICLOXACILLIN [Concomitant]
     Indication: BODY TEMPERATURE INCREASED
     Route: 048
  4. UNKNOWN MEDICATION [Concomitant]
     Indication: ARTHRITIS
     Route: 050

REACTIONS (4)
  - BODY TEMPERATURE INCREASED [None]
  - PAIN [None]
  - PRODUCT QUALITY ISSUE [None]
  - WRONG TECHNIQUE IN DRUG USAGE PROCESS [None]
